FAERS Safety Report 8300382-4 (Version None)
Quarter: 2012Q2

REPORT INFORMATION
  Report Type: 
  Country: None (occurrence: None)
  Receive Date: 20120420
  Receipt Date: 20120416
  Transmission Date: 20120825
  Serious: Yes (Death, Life-Threatening, Hospitalization)
  Sender: FDA-Public Use
  Company Number: GB-JNJFOC-20110703401

PATIENT
  Age: 74 Year
  Sex: Female

DRUGS (13)
  1. FOLIC ACID [Concomitant]
  2. HYPROMELLOSE [Concomitant]
  3. WARFARIN SODIUM [Concomitant]
     Dosage: ^PER INR^
  4. ACETAMINOPHEN AND CODEINE PHOSPHATE [Concomitant]
     Dosage: 30/500, AS NECESSARY
  5. PREDNISOLONE [Concomitant]
     Dosage: AS DIRECTED
  6. GOLIMUMAB [Suspect]
     Route: 058
     Dates: start: 20110625
  7. ALENDRONIC ACID [Concomitant]
  8. MOVICOL SACHET [Concomitant]
  9. GOLIMUMAB [Suspect]
     Indication: RHEUMATOID ARTHRITIS
     Route: 058
     Dates: start: 20101124
  10. METFORMIN HCL [Concomitant]
  11. LEVOTHYROXINE SODIUM [Concomitant]
  12. METHOTREXATE [Concomitant]
     Dosage: 9 TIMES 2.5MG
  13. ADCAL D3 [Concomitant]

REACTIONS (5)
  - PNEUMONIA [None]
  - SYNCOPE [None]
  - INFECTION [None]
  - LUNG SQUAMOUS CELL CARCINOMA STAGE UNSPECIFIED [None]
  - VOMITING [None]
